FAERS Safety Report 8573913-7 (Version None)
Quarter: 2012Q3

REPORT INFORMATION
  Report Type: 
  Country: None (occurrence: None)
  Receive Date: 20120806
  Receipt Date: 20120801
  Transmission Date: 20120928
  Serious: Yes (Death)
  Sender: FDA-Public Use
  Company Number: JP-AMGEN-JPNCT2012048743

PATIENT
  Age: 83 Year
  Sex: Female
  Weight: 60 kg

DRUGS (22)
  1. GASMOTIN [Concomitant]
     Dosage: UNK
     Route: 048
  2. MAGLAX [Concomitant]
     Dosage: UNK
     Route: 048
  3. MINIPRESS [Concomitant]
     Dosage: UNK
     Route: 048
  4. PURSENNID [Concomitant]
     Dosage: UNK
     Route: 048
  5. DARBEPOETIN ALFA - KHK [Suspect]
     Indication: NEPHROGENIC ANAEMIA
     Dosage: 60 MUG, UNK
     Route: 058
     Dates: start: 20110811, end: 20110811
  6. LANSOPRAZOLE [Concomitant]
     Dosage: UNK
     Route: 048
  7. CATAPRES [Concomitant]
     Dosage: UNK
     Route: 048
  8. TRICHLORMETHIAZIDE [Concomitant]
     Dosage: UNK
     Route: 048
  9. ISONIAZID [Concomitant]
     Dosage: UNK
     Route: 048
  10. ASPIRIN [Concomitant]
     Dosage: UNK
     Route: 048
  11. PROCYLIN [Concomitant]
     Dosage: UNK
     Route: 048
  12. RESPLEN [Concomitant]
     Dosage: UNK
     Route: 048
  13. RIFAMPICIN [Concomitant]
     Dosage: UNK
     Route: 048
  14. LASIX [Concomitant]
     Dosage: UNK
     Route: 048
  15. AMLODIPINE [Concomitant]
     Dosage: UNK
     Route: 048
  16. DIOVAN [Concomitant]
     Dosage: UNK
     Route: 048
  17. ADALAT CC [Concomitant]
     Dosage: UNK
     Route: 048
  18. HUMULIN N [Concomitant]
     Dosage: UNK
     Route: 065
  19. MUCOSTA [Concomitant]
     Dosage: UNK
     Route: 048
  20. INFREE S [Concomitant]
     Dosage: UNK UNK, UNK
     Route: 048
  21. MUCODYNE [Concomitant]
     Dosage: UNK
     Route: 048
  22. PYDOXAL [Concomitant]
     Dosage: UNK
     Route: 048

REACTIONS (1)
  - ACUTE MYOCARDIAL INFARCTION [None]
